FAERS Safety Report 5978476-8 (Version None)
Quarter: 2008Q4

REPORT INFORMATION
  Report Type: 
  Country: None (occurrence: None)
  Receive Date: 20081125
  Receipt Date: 20081118
  Transmission Date: 20090506
  Serious: Yes (Death, Life-Threatening)
  Sender: FDA-Public Use
  Company Number: 1000001326

PATIENT
  Sex: Female
  Weight: 4 kg

DRUGS (1)
  1. DINOPROSTONE (DINOPROSTONE) [Suspect]
     Indication: LABOUR INDUCTION
     Dosage: 10 MG (1 10 MG, ONCE), (TRANSPLACENTAL)
     Route: 064
     Dates: start: 20061027, end: 20061027

REACTIONS (5)
  - APGAR SCORE LOW [None]
  - BRADYCARDIA FOETAL [None]
  - DEATH NEONATAL [None]
  - MATERNAL DRUGS AFFECTING FOETUS [None]
  - NEONATAL HYPOXIA [None]
